FAERS Safety Report 10470611 (Version 13)
Quarter: 2015Q3

REPORT INFORMATION
  Report Type: Report from Study
  Country: US (occurrence: US)
  Receive Date: 20140923
  Receipt Date: 20150915
  Transmission Date: 20151125
  Serious: Yes (Hospitalization, Other)
  Sender: FDA-Public Use
  Company Number: US-ALEXION-A201403619

PATIENT

DRUGS (6)
  1. PROMACTA [Suspect]
     Active Substance: ELTROMBOPAG OLAMINE
     Indication: RED BLOOD CELL COUNT ABNORMAL
     Dosage: 50 MG, QD
     Route: 048
     Dates: start: 20150420
  2. PROMACTA [Suspect]
     Active Substance: ELTROMBOPAG OLAMINE
     Indication: PLATELET COUNT ABNORMAL
  3. SOLIRIS [Suspect]
     Active Substance: ECULIZUMAB
     Dosage: 900 MG, Q2W
     Route: 042
  4. PROGRAF [Suspect]
     Active Substance: TACROLIMUS\TACROLIMUS ANHYDROUS
     Indication: APLASTIC ANAEMIA
     Route: 065
  5. CORTISONE [Concomitant]
     Active Substance: CORTISONE\HYDROCORTISONE
     Indication: PRODUCT USED FOR UNKNOWN INDICATION
     Route: 065
  6. SOLIRIS [Suspect]
     Active Substance: ECULIZUMAB
     Indication: PAROXYSMAL NOCTURNAL HAEMOGLOBINURIA
     Dosage: UNK UNK, Q2W
     Route: 042
     Dates: start: 20140912

REACTIONS (39)
  - Fracture [Unknown]
  - Haemoglobin abnormal [Unknown]
  - Catheter site discolouration [Unknown]
  - Contusion [Unknown]
  - Haemoglobin decreased [Recovering/Resolving]
  - Joint swelling [Unknown]
  - Haematocrit decreased [Not Recovered/Not Resolved]
  - Unevaluable event [Unknown]
  - Malaise [Unknown]
  - White blood cell count decreased [Unknown]
  - Petechiae [Not Recovered/Not Resolved]
  - Joint injury [Unknown]
  - Epistaxis [Unknown]
  - Myalgia [Unknown]
  - Platelet count abnormal [Not Recovered/Not Resolved]
  - Diarrhoea [Unknown]
  - Blood iron increased [Unknown]
  - Rotator cuff syndrome [Unknown]
  - Bone marrow disorder [Unknown]
  - Fall [Unknown]
  - Drug ineffective [Not Recovered/Not Resolved]
  - Jaundice [Unknown]
  - Red blood cell count decreased [Unknown]
  - Platelet count decreased [Not Recovered/Not Resolved]
  - Platelet count abnormal [Recovering/Resolving]
  - Malaise [Unknown]
  - Pain in extremity [Unknown]
  - Pain in extremity [Unknown]
  - Aplastic anaemia [Unknown]
  - Musculoskeletal pain [Unknown]
  - Nausea [Unknown]
  - Fatigue [Not Recovered/Not Resolved]
  - Haemoglobin decreased [Not Recovered/Not Resolved]
  - Night sweats [Unknown]
  - White blood cell disorder [Unknown]
  - Tremor [Unknown]
  - Headache [Recovered/Resolved]
  - Reticulocyte count decreased [Recovering/Resolving]
  - Dyspnoea [Not Recovered/Not Resolved]

NARRATIVE: CASE EVENT DATE: 20140913
